FAERS Safety Report 4501929-6 (Version None)
Quarter: 2004Q4

REPORT INFORMATION
  Report Type: 
  Country: None (occurrence: None)
  Receive Date: 20041109
  Receipt Date: 20041029
  Transmission Date: 20050328
  Serious: Yes (Other)
  Sender: FDA-Public Use
  Company Number: A-CH2004-07939

PATIENT
  Age: 77 Year
  Sex: Female

DRUGS (3)
  1. TRACLEER [Suspect]
     Indication: PULMONARY HYPERTENSION
     Dosage: 62.5 MG, BID, ORAL
     Route: 048
     Dates: start: 20040504, end: 20040601
  2. WARFARIN SODIUM [Concomitant]
  3. OXYGEN [Concomitant]

REACTIONS (2)
  - CARDIOMYOPATHY [None]
  - CONDITION AGGRAVATED [None]
